FAERS Safety Report 7283211-X (Version None)
Quarter: 2011Q1

REPORT INFORMATION
  Report Type: 
  Country: None (occurrence: None)
  Receive Date: 20110209
  Receipt Date: 20110131
  Transmission Date: 20110831
  Serious: Yes (Other)
  Sender: FDA-Public Use
  Company Number: US-RB-020329-11

PATIENT
  Age: 74 Year
  Sex: Female

DRUGS (1)
  1. MUCINEX DM [Suspect]
     Route: 048

REACTIONS (3)
  - DIZZINESS [None]
  - DEHYDRATION [None]
  - BLOOD PRESSURE INCREASED [None]
